FAERS Safety Report 9285781 (Version 4)
Quarter: 2013Q3

REPORT INFORMATION
  Report Type: Spontaneous
  Country: US (occurrence: US)
  Receive Date: 20130513
  Receipt Date: 20130819
  Transmission Date: 20140515
  Serious: Yes (Death)
  Sender: FDA-Public Use
  Company Number: US-PFIZER INC-2013146170

PATIENT
  Age: 87 Year
  Sex: Male

DRUGS (18)
  1. SUTENT [Suspect]
     Indication: GASTROINTESTINAL CARCINOMA
     Dosage: 50 MG, UNK
     Dates: start: 20120529
  2. LIPITOR [Suspect]
     Dosage: UNK
  3. GLIPIZIDE [Suspect]
     Dosage: UNK
  4. DOXAZOSIN MESILATE [Suspect]
     Dosage: UNK
  5. FOLIC ACID [Suspect]
     Dosage: UNK
  6. GLUCOSAMINE [Suspect]
  7. CHONDROITIN SULFATE [Suspect]
     Dosage: UNK
  8. LOSARTAN POTASSIUM [Suspect]
     Dosage: UNK
  9. VITAMIN C [Suspect]
     Dosage: UNK
  10. PROSCAR [Suspect]
     Dosage: UNK
  11. FOSAMAX [Suspect]
     Dosage: UNK
  12. WARFARIN [Suspect]
     Dosage: UNK
  13. VITAMIN D3 [Suspect]
     Dosage: UNK
  14. HYDROCHLOROTHIAZIDE [Suspect]
     Dosage: UNK
  15. OMEGA 3 [Suspect]
     Dosage: UNK
  16. KCL [Suspect]
     Dosage: UNK
  17. VITAMIN A [Suspect]
     Dosage: UNK
  18. CINNAMON [Suspect]
     Dosage: UNK

REACTIONS (5)
  - Bradyarrhythmia [Fatal]
  - Rash [Unknown]
  - Off label use [Unknown]
  - Disease progression [Unknown]
  - Gastrointestinal carcinoma [Unknown]
